FAERS Safety Report 7229876-X (Version None)
Quarter: 2011Q1

REPORT INFORMATION
  Report Type: 
  Country: None (occurrence: None)
  Receive Date: 20110117
  Receipt Date: 20110105
  Transmission Date: 20110831
  Serious: Yes (Other)
  Sender: FDA-Public Use
  Company Number: PHHY2011US01162

PATIENT
  Age: 44 Year

DRUGS (2)
  1. ITRACONAZOLE [Suspect]
     Indication: HISTOPLASMOSIS
     Dosage: 200 MG, QD (FOR 6 MONTHS)
  2. INFLIXIMAB [Concomitant]

REACTIONS (1)
  - CROHN'S DISEASE [None]
